FAERS Safety Report 5639969-6 (Version None)
Quarter: 2008Q1

REPORT INFORMATION
  Report Type: 
  Country: None (occurrence: None)
  Receive Date: 20080226
  Receipt Date: 20080226
  Transmission Date: 20080703
  Serious: No
  Sender: FDA-Public Use
  Company Number: None

PATIENT
  Age: 77 Year
  Sex: Male
  Weight: 77 kg

DRUGS (2)
  1. ALENDRONATE SODIUM [Suspect]
     Dosage: 70MG QWEEK PO
     Route: 048
     Dates: start: 20071117, end: 20080121
  2. ASPIRIN [Suspect]
     Dosage: 325MG EVERY DAY PO
     Route: 048
     Dates: start: 19991215, end: 20080121

REACTIONS (4)
  - GASTRIC HAEMORRHAGE [None]
  - HAEMORRHAGE [None]
  - HYPOTENSION [None]
  - UPPER GASTROINTESTINAL HAEMORRHAGE [None]
